FAERS Safety Report 4850550-9 (Version None)
Quarter: 2005Q4

REPORT INFORMATION
  Report Type: 
  Country: None (occurrence: None)
  Receive Date: 20051208
  Receipt Date: 20041118
  Transmission Date: 20060501
  Serious: Yes (Other)
  Sender: FDA-Public Use
  Company Number: 2004241761CA

PATIENT
  Age: 61 Year
  Sex: Male

DRUGS (1)
  1. BEXTRA [Suspect]
     Indication: OSTEOARTHRITIS
     Dosage: 20 MG (20 MG, 1 IN 1 D), ORAL
     Route: 048
     Dates: start: 20040112, end: 20040118

REACTIONS (3)
  - FATIGUE [None]
  - LIVER FUNCTION TEST ABNORMAL [None]
  - STEVENS-JOHNSON SYNDROME [None]
